FAERS Safety Report 13830054 (Version 3)
Quarter: 2017Q3

REPORT INFORMATION
  Report Type: Report from Study
  Country: CA (occurrence: CA)
  Receive Date: 20170803
  Receipt Date: 20170905
  Transmission Date: 20171127
  Serious: Yes (Hospitalization, Other)
  Sender: FDA-Public Use
  Company Number: CA-VERTEX PHARMACEUTICALS-2017-003817

PATIENT
  Age: 35 Year
  Sex: Female

DRUGS (3)
  1. ORKAMBI [Suspect]
     Active Substance: IVACAFTOR\LUMACAFTOR
     Dosage: 200/125 MG, BID
     Route: 048
     Dates: start: 20170725
  2. ORKAMBI [Suspect]
     Active Substance: IVACAFTOR\LUMACAFTOR
     Indication: CYSTIC FIBROSIS
     Dosage: 200MG/125MG, BID
     Route: 048
     Dates: start: 20170711
  3. ORKAMBI [Suspect]
     Active Substance: IVACAFTOR\LUMACAFTOR
     Dosage: 2(200MG/125MG) TABS, BID
     Route: 048
     Dates: start: 20170712, end: 20170720

REACTIONS (9)
  - Respiration abnormal [Not Recovered/Not Resolved]
  - Nausea [Not Recovered/Not Resolved]
  - Sunburn [Recovering/Resolving]
  - Rash generalised [Recovered/Resolved]
  - Hypotension [Recovering/Resolving]
  - White blood cell count increased [Unknown]
  - Vomiting [Recovered/Resolved]
  - Dehydration [Unknown]
  - Tachycardia [Recovering/Resolving]

NARRATIVE: CASE EVENT DATE: 201707
